FAERS Safety Report 4308158-X (Version None)
Quarter: 2004Q1

REPORT INFORMATION
  Report Type: 
  Country: None (occurrence: None)
  Receive Date: 20040301
  Receipt Date: 20030701
  Transmission Date: 20041129
  Serious: Yes (Other)
  Sender: FDA-Public Use
  Company Number: US-BRISTOL-MYERS SQUIBB COMPANY-12317509

PATIENT
  Age: 56 Year
  Sex: Female
  Weight: 91 kg

DRUGS (13)
  1. GLUCOPHAGE [Suspect]
     Indication: DIABETES MELLITUS
     Dosage: THERAPY INTERRUPTED FROM 29-JUN-2003 TO 02-JUL-2003 FOR CT SCAN
     Route: 048
  2. INSULIN [Concomitant]
  3. FOSAMAX [Concomitant]
  4. PLAVIX [Concomitant]
  5. CELLCEPT [Concomitant]
  6. AZATHIOPRINE [Concomitant]
  7. PREDNISOLONE [Concomitant]
  8. ALLEGRA [Concomitant]
  9. NEURONTIN [Concomitant]
  10. LEVOTHROID [Concomitant]
  11. DICLOFENAC [Concomitant]
  12. ATENOLOL [Concomitant]
  13. NITROGLYCERIN [Concomitant]

REACTIONS (3)
  - BLOOD GLUCOSE INCREASED [None]
  - DIZZINESS [None]
  - HEADACHE [None]
